FAERS Safety Report 16260446 (Version 1)
Quarter: 2019Q2

REPORT INFORMATION
  Report Type: Spontaneous
  Country: US (occurrence: US)
  Receive Date: 20190430
  Receipt Date: 20190430
  Transmission Date: 20190711
  Serious: Yes (Hospitalization)
  Sender: FDA-Public Use
  Company Number: None

PATIENT
  Age: 62 Year
  Sex: Female
  Weight: 43.2 kg

DRUGS (1)
  1. GABAPENTIN. [Suspect]
     Active Substance: GABAPENTIN
     Indication: HERPES ZOSTER
     Dates: start: 20180801, end: 20190430

REACTIONS (17)
  - Skin burning sensation [None]
  - Dizziness [None]
  - Alopecia [None]
  - Myalgia [None]
  - Neuralgia [None]
  - Sedation [None]
  - Agitation [None]
  - Blood pressure increased [None]
  - Ataxia [None]
  - Tachycardia [None]
  - Nausea [None]
  - Abdominal pain upper [None]
  - Stomatitis [None]
  - Anxiety [None]
  - Chest pain [None]
  - Swelling face [None]
  - Peripheral swelling [None]

NARRATIVE: CASE EVENT DATE: 20180801
